FAERS Safety Report 9586055 (Version 1)
Quarter: 2013Q4

REPORT INFORMATION
  Report Type: Spontaneous
  Country: US (occurrence: US)
  Receive Date: 20131003
  Receipt Date: 20131003
  Transmission Date: 20140711
  Serious: No
  Sender: FDA-Public Use
  Company Number: US-BAYER-2013-117464

PATIENT
  Sex: Female
  Weight: 95.24 kg

DRUGS (12)
  1. BETASERON [Suspect]
     Dosage: 0.25 MG, QOD
     Route: 058
  2. LIPITOR [Concomitant]
     Dosage: 10 MG, UNK
  3. PRILOSEC [Concomitant]
     Dosage: 20 MG, UNK
  4. MULTIVITAMIN [Concomitant]
     Dosage: UNK
  5. LEXAPRO [Concomitant]
     Dosage: 5 MG, UNK
  6. VICODIN [Concomitant]
     Dosage: 500 MG, UNK
  7. SYNTHROID [Concomitant]
     Dosage: UNK
  8. VITAMIN B [Concomitant]
     Dosage: UNK
  9. VITAMIN B12 NOS [Concomitant]
     Dosage: 500 MCG
  10. CALCIUM +VIT D [Concomitant]
     Dosage: UNK
  11. NORVASC [Concomitant]
  12. ESTROVEN MULTI-VITAMIN [Concomitant]
     Indication: MOOD ALTERED

REACTIONS (1)
  - Drug ineffective [Unknown]
